FAERS Safety Report 16579082 (Version 1)
Quarter: 2019Q3

REPORT INFORMATION
  Report Type: Spontaneous
  Country: TW (occurrence: TW)
  Receive Date: 20190716
  Receipt Date: 20190716
  Transmission Date: 20191004
  Serious: Yes (Death)
  Sender: FDA-Public Use
  Company Number: TW-CELGENEUS-TWN-20190704571

PATIENT
  Age: 54 Year
  Sex: Male
  Weight: 70 kg

DRUGS (2)
  1. POMALYST [Suspect]
     Active Substance: POMALIDOMIDE
     Indication: PLASMA CELL MYELOMA
     Dosage: 4 MILLIGRAM
     Route: 048
     Dates: start: 20190601, end: 20190614
  2. POMALYST [Suspect]
     Active Substance: POMALIDOMIDE
     Dosage: 4 MILLIGRAM
     Route: 048
     Dates: start: 20180327

REACTIONS (2)
  - Pneumonia [Fatal]
  - Respiratory failure [Fatal]

NARRATIVE: CASE EVENT DATE: 20190614
